FAERS Safety Report 9650785 (Version 1)
Quarter: 2013Q4

REPORT INFORMATION
  Report Type: Spontaneous
  Country: FR (occurrence: None)
  Receive Date: 20131024
  Receipt Date: 20131024
  Transmission Date: 20140711
  Serious: Yes (Death)
  Sender: FDA-Public Use
  Company Number: OTH-SPN-2013010

PATIENT
  Age: 4 Year
  Sex: Male
  Weight: 14 kg

DRUGS (1)
  1. CARBAGLU (CARGLUMIC ACID) [Suspect]
     Indication: HYPERAMMONAEMIA

REACTIONS (6)
  - Vomiting [None]
  - Pancreatitis [None]
  - Respiratory disorder [None]
  - Sepsis [None]
  - Multi-organ failure [None]
  - Lung infiltration [None]
